FAERS Safety Report 10029276 (Version 3)
Quarter: 2014Q2

REPORT INFORMATION
  Report Type: Report from Study
  Country: DE (occurrence: DE)
  Receive Date: 20140321
  Receipt Date: 20140415
  Transmission Date: 20141212
  Serious: Yes (Hospitalization)
  Sender: FDA-Public Use
  Company Number: DE-ASTRAZENECA-2014SE10565

PATIENT
  Age: 65 Year
  Sex: Male
  Weight: 86 kg

DRUGS (5)
  1. AZD6140 [Suspect]
     Indication: PERIPHERAL ARTERIAL OCCLUSIVE DISEASE
     Route: 048
     Dates: start: 20130502, end: 20140211
  2. TRIAMPUR [Concomitant]
     Indication: HYPERTENSION
     Route: 048
     Dates: start: 2007
  3. SORTIS [Concomitant]
     Indication: HYPERLIPIDAEMIA
     Route: 048
     Dates: start: 2012
  4. CORIFEO [Concomitant]
     Indication: HYPERTENSION
     Route: 048
     Dates: start: 201303
  5. PANTOZOL [Concomitant]
     Indication: GASTRITIS PROPHYLAXIS
     Route: 048
     Dates: start: 201303

REACTIONS (1)
  - Iron deficiency anaemia [Recovered/Resolved]
